FAERS Safety Report 4987072-0 (Version None)
Quarter: 2006Q2

REPORT INFORMATION
  Report Type: 
  Country: None (occurrence: None)
  Receive Date: 20060501
  Receipt Date: 20060322
  Transmission Date: 20061013
  Serious: Yes (Other)
  Sender: FDA-Public Use
  Company Number: US-GLAXOSMITHKLINE-A0603609A

PATIENT

DRUGS (2)
  1. SEREVENT [Suspect]
     Indication: DRUG USE FOR UNKNOWN INDICATION
     Route: 055
  2. NO CONCURRENT MEDICATION [Concomitant]

REACTIONS (1)
  - STATUS ASTHMATICUS [None]
